FAERS Safety Report 7940278-0 (Version None)
Quarter: 2011Q4

REPORT INFORMATION
  Report Type: 
  Country: None (occurrence: None)
  Receive Date: 20111126
  Receipt Date: 20110921
  Transmission Date: 20120403
  Serious: No
  Sender: FDA-Public Use
  Company Number: US-BAYER-2011-091334

PATIENT
  Age: 77 Year
  Sex: Male
  Weight: 79 kg

DRUGS (2)
  1. PROSTATE HEALTH ESSENTIALS [Concomitant]
  2. ALEVE (CAPLET) [Suspect]
     Indication: MYALGIA
     Dosage: 2 DF, BID
     Route: 048
     Dates: start: 20110918, end: 20110918

REACTIONS (1)
  - NO ADVERSE EVENT [None]
